FAERS Safety Report 8560714-9 (Version None)
Quarter: 2012Q3

REPORT INFORMATION
  Report Type: 
  Country: None (occurrence: None)
  Receive Date: 20120802
  Receipt Date: 20120730
  Transmission Date: 20120928
  Serious: Yes (Hospitalization, Other)
  Sender: FDA-Public Use
  Company Number: PHHY2009AU37546

PATIENT
  Sex: Male

DRUGS (11)
  1. CLOZARIL [Suspect]
     Dosage: 250 MG, UNK
     Dates: start: 20100531
  2. VITAMIN D [Concomitant]
     Indication: VITAMIN D DECREASED
     Dosage: 25 UG, QD
     Route: 048
     Dates: start: 20111001
  3. CLOZARIL [Suspect]
     Dosage: 300 MG, UNK
     Dates: start: 20111017, end: 20120501
  4. GLICLAZIDE [Concomitant]
     Indication: DIABETES MELLITUS
     Dosage: 60 MG, BID
  5. VALPROATE SODIUM [Concomitant]
     Indication: MOOD ALTERED
     Dosage: 0.5 MG, BID
  6. CLOMIPRAMINE HCL [Concomitant]
     Indication: OBSESSIVE-COMPULSIVE DISORDER
     Dosage: 100 MG, UNK
     Route: 048
  7. CLOZARIL [Suspect]
     Indication: SCHIZOAFFECTIVE DISORDER
     Dosage: 12.5 MG, DAILY
     Route: 048
     Dates: start: 20050203
  8. VALPROATE SODIUM [Concomitant]
     Dosage: 1500 MG, BID
     Route: 048
  9. CLOMIPRAMINE HCL [Concomitant]
     Dosage: 200 MG, UNK
     Route: 048
     Dates: start: 20120501
  10. CITALOPRAM HYDROBROMIDE [Concomitant]
     Dosage: 40 MG DAILY
  11. QUETIAPINE [Concomitant]
     Indication: OBSESSIVE-COMPULSIVE DISORDER
     Dosage: 200 MG, QD
     Route: 048
     Dates: start: 20120501

REACTIONS (6)
  - OBSESSIVE-COMPULSIVE DISORDER [None]
  - APATHY [None]
  - IMPULSE-CONTROL DISORDER [None]
  - OPEN WOUND [None]
  - INTENTIONAL SELF-INJURY [None]
  - DEPRESSION [None]
